FAERS Safety Report 20481519 (Version 1)
Quarter: 2022Q1

REPORT INFORMATION
  Report Type: Spontaneous
  Country: US (occurrence: None)
  Receive Date: 20220216
  Receipt Date: 20220216
  Transmission Date: 20220423
  Serious: Yes (Hospitalization)
  Sender: FDA-Public Use
  Company Number: None

PATIENT
  Sex: Female

DRUGS (6)
  1. GLATIRAMER [Suspect]
     Active Substance: GLATIRAMER
     Indication: Multiple sclerosis
     Dosage: INJECT 1 SYNRINGE UNDER THE SKIN (SUBCUTANEOUS INJECTION) THREE TIMES PER WEEK?
     Route: 058
     Dates: start: 20220125
  2. GLATIRAMER [Suspect]
     Active Substance: GLATIRAMER
     Dosage: OTHER QUANTITY : 1 SYRINGE;?FREQUENCY : 3 TIMES A WEEK;?
     Route: 058
  3. COPAXONE [Concomitant]
     Active Substance: GLATIRAMER ACETATE
  4. GLATIRAMER AUTOINJECT DEVICE [Concomitant]
  5. KEPPRA [Concomitant]
     Active Substance: LEVETIRACETAM
  6. LIPITOR [Concomitant]
     Active Substance: ATORVASTATIN CALCIUM

REACTIONS (5)
  - Pneumonia [None]
  - Asthma [None]
  - Eczema [None]
  - Oxygen saturation decreased [None]
  - Heart rate decreased [None]

NARRATIVE: CASE EVENT DATE: 20211101
